FAERS Safety Report 9962829 (Version 2)
Quarter: 2014Q1

REPORT INFORMATION
  Report Type: Report from Study
  Country: US (occurrence: US)
  Receive Date: 20140305
  Receipt Date: 20140305
  Transmission Date: 20141002
  Serious: No
  Sender: FDA-Public Use
  Company Number: US-ABBVIE-13P-163-1075264-00

PATIENT
  Age: 66 Year
  Sex: Female

DRUGS (11)
  1. HUMIRA [Suspect]
     Indication: CROHN^S DISEASE
     Route: 058
     Dates: start: 20130316
  2. HUMIRA [Suspect]
     Route: 058
  3. ATENOLOL [Concomitant]
     Indication: BLOOD PRESSURE
  4. LISINOPRIL [Concomitant]
     Indication: BLOOD PRESSURE
     Dosage: IN THE EVENING
  5. EVISTA [Concomitant]
     Indication: BONE DENSITY ABNORMAL
     Dosage: IN THE EVENING
  6. IMODIUM [Concomitant]
     Indication: DIARRHOEA
     Dosage: 2 IN THE AM AND 2 IN THE EVENING
  7. IMODIUM [Concomitant]
     Indication: PAIN
     Dosage: DAILY
  8. VITAMIN C [Concomitant]
     Indication: VITAMIN SUPPLEMENTATION
  9. LORATADINE [Concomitant]
     Indication: HYPERSENSITIVITY
  10. FLAGYL [Concomitant]
     Indication: PROPHYLAXIS
     Dosage: 7 DAYS ON 7 DAYS OFF 1 IN AM AND 1 IN PM
  11. METOPROLOL [Concomitant]
     Indication: BLOOD PRESSURE

REACTIONS (6)
  - Renal disorder [Unknown]
  - Injection site rash [Unknown]
  - Injection site erythema [Recovered/Resolved]
  - Injection site pruritus [Recovered/Resolved]
  - Diarrhoea [Recovered/Resolved]
  - Injection site reaction [Recovered/Resolved]
